FAERS Safety Report 6430675-7 (Version None)
Quarter: 2009Q4

REPORT INFORMATION
  Report Type: 
  Country: None (occurrence: None)
  Receive Date: 20091106
  Receipt Date: 20091102
  Transmission Date: 20100525
  Serious: Yes (Hospitalization)
  Sender: FDA-Public Use
  Company Number: B0601998A

PATIENT
  Sex: Female
  Weight: 67 kg

DRUGS (4)
  1. LAPATINIB [Suspect]
     Indication: BREAST CANCER
     Route: 048
     Dates: start: 20090722
  2. DOCETAXEL [Suspect]
     Indication: BREAST CANCER
     Dosage: 172MG EVERY 3 WEEKS
     Route: 042
     Dates: start: 20091021
  3. EPIRUBICIN [Suspect]
     Indication: BREAST CANCER
     Dosage: 154MG EVERY 3 WEEKS
     Route: 042
     Dates: start: 20090722, end: 20090930
  4. CYCLOPHOSPHAMIDE [Suspect]
     Indication: BREAST CANCER
     Dosage: 1030MG EVERY 3 WEEKS
     Route: 042
     Dates: start: 20090722, end: 20090930

REACTIONS (1)
  - STOMATITIS [None]
